FAERS Safety Report 6452209-3 (Version None)
Quarter: 2009Q4

REPORT INFORMATION
  Report Type: 
  Country: None (occurrence: None)
  Receive Date: 20091117
  Receipt Date: 20091103
  Transmission Date: 20100525
  Serious: Yes (Other)
  Sender: FDA-Public Use
  Company Number: 2009SP034230

PATIENT
  Age: 40 Year
  Sex: Female

DRUGS (2)
  1. DESLORATADINE AND PSEUDOEPHEDRINE SULFATE [Suspect]
     Indication: SINUSITIS
     Dates: start: 20090101
  2. KEFEXIN (CON.) [Concomitant]

REACTIONS (3)
  - MOUTH ULCERATION [None]
  - OEDEMA MOUTH [None]
  - PALATAL OEDEMA [None]
